FAERS Safety Report 6630473-5 (Version None)
Quarter: 2010Q1

REPORT INFORMATION
  Report Type: 
  Country: None (occurrence: None)
  Receive Date: 20100311
  Receipt Date: 20090624
  Transmission Date: 20100710
  Serious: No
  Sender: FDA-Public Use
  Company Number: US-BIOGENIDEC-2009BI019316

PATIENT
  Age: 37 Year
  Sex: Female

DRUGS (3)
  1. AVONEX [Suspect]
     Indication: MULTIPLE SCLEROSIS
     Route: 030
     Dates: start: 19960101, end: 19970101
  2. AVONEX [Suspect]
     Route: 030
     Dates: start: 20090612, end: 20090622
  3. DESMOPRESSIN ACETATE [Concomitant]
     Indication: POLLAKIURIA
     Route: 048
     Dates: start: 20090501

REACTIONS (6)
  - ERYTHEMA [None]
  - MUSCULOSKELETAL STIFFNESS [None]
  - PARALYSIS [None]
  - PERIPHERAL COLDNESS [None]
  - PYREXIA [None]
  - SWELLING FACE [None]
